FAERS Safety Report 11322823 (Version 14)
Quarter: 2022Q1

REPORT INFORMATION
  Report Type: Report from Study
  Country: JP (occurrence: JP)
  Receive Date: 20150730
  Receipt Date: 20220321
  Transmission Date: 20220423
  Serious: Yes (Other)
  Sender: FDA-Public Use
  Company Number: PHJP2015JP012576

PATIENT
  Age: 37 Year
  Sex: Male
  Weight: 50 kg

DRUGS (28)
  1. ILARIS [Suspect]
     Active Substance: CANAKINUMAB
     Indication: Muckle-Wells syndrome
     Dosage: 150 MG, UNK
     Route: 058
     Dates: start: 20141006
  2. ILARIS [Suspect]
     Active Substance: CANAKINUMAB
     Indication: Cryopyrin associated periodic syndrome
     Dosage: 150 MG, UNK
     Route: 058
     Dates: start: 20141201, end: 20141201
  3. ILARIS [Suspect]
     Active Substance: CANAKINUMAB
     Dosage: 150 MG, UNK
     Route: 058
     Dates: start: 20150126, end: 20150126
  4. ILARIS [Suspect]
     Active Substance: CANAKINUMAB
     Dosage: 150 MG, UNK
     Route: 058
     Dates: start: 20150323
  5. ILARIS [Suspect]
     Active Substance: CANAKINUMAB
     Dosage: 300 MG, UNK
     Route: 058
     Dates: start: 20151102
  6. ILARIS [Suspect]
     Active Substance: CANAKINUMAB
     Dosage: 300 MG, UNK
     Route: 058
     Dates: start: 20151221
  7. ILARIS [Suspect]
     Active Substance: CANAKINUMAB
     Dosage: 300 MG, UNK
     Route: 058
     Dates: start: 20160215
  8. ILARIS [Suspect]
     Active Substance: CANAKINUMAB
     Dosage: 300 MG, UNK
     Route: 058
     Dates: start: 20160411
  9. ILARIS [Suspect]
     Active Substance: CANAKINUMAB
     Dosage: 300 MG, UNK
     Route: 058
     Dates: start: 20160613
  10. ILARIS [Suspect]
     Active Substance: CANAKINUMAB
     Dosage: 300 MG, UNK
     Route: 058
     Dates: start: 20160808
  11. ILARIS [Suspect]
     Active Substance: CANAKINUMAB
     Dosage: 300 MG, UNK
     Route: 058
     Dates: start: 20160926
  12. INFLUENZA VIRUS VACCINE [Suspect]
     Active Substance: INFLUENZA VIRUS VACCINE
     Indication: Product used for unknown indication
     Dosage: UNK
     Route: 065
  13. VOLTAREN ^CIBA-GEIGY^ [Concomitant]
     Indication: Muckle-Wells syndrome
     Dosage: UNK
     Route: 048
     Dates: start: 19870701, end: 20141005
  14. VOLTAREN ^CIBA-GEIGY^ [Concomitant]
     Dosage: 25 TO 75 MG, UNK
     Route: 048
     Dates: start: 20141006, end: 20150313
  15. PREDNISOLONE [Concomitant]
     Active Substance: PREDNISOLONE
     Indication: Muckle-Wells syndrome
     Dosage: UNK
     Route: 048
     Dates: start: 19871122, end: 20141005
  16. PREDNISOLONE [Concomitant]
     Active Substance: PREDNISOLONE
     Dosage: 5 MG, QOD
     Route: 048
     Dates: start: 20141006, end: 20141228
  17. PREDNISOLONE [Concomitant]
     Active Substance: PREDNISOLONE
     Dosage: 2 MG, UNK
     Route: 048
     Dates: start: 20141229
  18. PREDNISOLONE [Concomitant]
     Active Substance: PREDNISOLONE
     Dosage: 2 MG, UNK
     Route: 048
     Dates: start: 20150908
  19. LOXOPROFEN SODIUM [Concomitant]
     Active Substance: LOXOPROFEN SODIUM
     Indication: Muckle-Wells syndrome
     Dosage: UNK
     Route: 048
     Dates: start: 19870701, end: 20141005
  20. LOXOPROFEN SODIUM [Concomitant]
     Active Substance: LOXOPROFEN SODIUM
     Dosage: 60 TO 180 MG, UNK
     Route: 048
     Dates: start: 20141006, end: 20150313
  21. IBUPROFEN [Concomitant]
     Active Substance: IBUPROFEN
     Indication: Muckle-Wells syndrome
     Dosage: UNK
     Route: 048
     Dates: start: 19870701, end: 20141005
  22. IBUPROFEN [Concomitant]
     Active Substance: IBUPROFEN
     Dosage: 400 MG, UNK
     Route: 048
     Dates: start: 20141006, end: 20150313
  23. CALONAL [Concomitant]
     Active Substance: ACETAMINOPHEN
     Indication: Muckle-Wells syndrome
     Dosage: UNK
     Route: 048
     Dates: start: 19870701, end: 20141005
  24. CALONAL [Concomitant]
     Active Substance: ACETAMINOPHEN
     Dosage: 400 MG, UNK
     Route: 048
     Dates: start: 20141006, end: 20150313
  25. BUFFERIN                           /00009201/ [Concomitant]
     Indication: Muckle-Wells syndrome
     Dosage: UNK
     Route: 048
     Dates: start: 19870701, end: 20141005
  26. BUFFERIN                           /00009201/ [Concomitant]
     Dosage: 1 DF, UNK
     Route: 048
     Dates: start: 20141006, end: 20150313
  27. TACROLIMUS [Concomitant]
     Active Substance: TACROLIMUS
     Indication: Muckle-Wells syndrome
     Dosage: UNK
     Route: 048
     Dates: start: 20050901, end: 20060201
  28. MINOCYCLINE HYDROCHLORIDE [Concomitant]
     Active Substance: MINOCYCLINE HYDROCHLORIDE
     Indication: Muckle-Wells syndrome
     Dosage: UNK
     Route: 048
     Dates: start: 20110601, end: 20111001

REACTIONS (12)
  - CSF cell count increased [Not Recovered/Not Resolved]
  - CSF protein increased [Not Recovered/Not Resolved]
  - Interleukin level increased [Not Recovered/Not Resolved]
  - Blood immunoglobulin G increased [Unknown]
  - Alcohol intolerance [Unknown]
  - Serum amyloid A protein increased [Recovered/Resolved]
  - C-reactive protein increased [Recovered/Resolved]
  - Drug ineffective [Unknown]
  - Pyrexia [Recovered/Resolved]
  - Myalgia [Recovered/Resolved]
  - Headache [Recovered/Resolved]
  - Arthralgia [Recovered/Resolved]

NARRATIVE: CASE EVENT DATE: 20150323
